FAERS Safety Report 23847627 (Version 2)
Quarter: 2024Q2

REPORT INFORMATION
  Report Type: Spontaneous
  Country: US (occurrence: US)
  Receive Date: 20240513
  Receipt Date: 20240628
  Transmission Date: 20240716
  Serious: Yes (Other)
  Sender: FDA-Public Use
  Company Number: US-PFIZER INC-PV202400060339

PATIENT
  Age: 20 Year
  Sex: Male

DRUGS (3)
  1. DEMEROL [Interacting]
     Active Substance: MEPERIDINE HYDROCHLORIDE
     Indication: Gastrooesophageal reflux disease
     Dosage: UNK
  2. LEXAPRO [Interacting]
     Active Substance: ESCITALOPRAM OXALATE
     Dosage: UNK
  3. LUMRYZ [Suspect]
     Active Substance: SODIUM OXYBATE
     Dosage: 7.5 G
     Dates: start: 20240416, end: 2024

REACTIONS (5)
  - Drug interaction [Unknown]
  - Loss of consciousness [Unknown]
  - Ulcer [Unknown]
  - Rash [Unknown]
  - Off label use [Unknown]
